FAERS Safety Report 9388049 (Version 1)
Quarter: 2013Q3

REPORT INFORMATION
  Report Type: Spontaneous
  Country: US (occurrence: None)
  Receive Date: 20130703
  Receipt Date: 20130703
  Transmission Date: 20140515
  Serious: Yes (Other)
  Sender: FDA-Public Use
  Company Number: 130207

PATIENT
  Age: 75 Year
  Sex: Female

DRUGS (2)
  1. SUPREP BOWEL PREP KIT [Suspect]
     Indication: COLONOSCOPY
     Dosage: 1 X 6 OZ. BOTTLE/1X/PO
     Route: 048
     Dates: start: 20130625
  2. REGLAN [Concomitant]

REACTIONS (5)
  - Dizziness [None]
  - Retching [None]
  - Hypoaesthesia [None]
  - Hypoaesthesia [None]
  - Oesophageal spasm [None]
